FAERS Safety Report 6271912-1 (Version None)
Quarter: 2009Q3

REPORT INFORMATION
  Report Type: 
  Country: None (occurrence: None)
  Receive Date: 20090717
  Receipt Date: 20090706
  Transmission Date: 20100115
  Serious: Yes (Other)
  Sender: FDA-Public Use
  Company Number: IN-ASTRAZENECA-2009SE04098

PATIENT
  Age: 38 Year
  Sex: Female

DRUGS (3)
  1. XYLOCAINE W/ EPINEPHRINE [Suspect]
     Indication: CATARACT OPERATION COMPLICATION
     Dosage: 4CC GIVEN TWICE
     Route: 042
  2. XYLOCAINE W/ EPINEPHRINE [Suspect]
     Indication: CATARACT
     Dosage: 4CC GIVEN TWICE
     Route: 042
  3. SENSORCAINE [Suspect]
     Indication: CATARACT OPERATION COMPLICATION
     Dosage: 4 CC GIVEN TWICE

REACTIONS (3)
  - CONJUNCTIVAL OEDEMA [None]
  - EXOPHTHALMOS [None]
  - EYELID OEDEMA [None]
